FAERS Safety Report 22316302 (Version 1)
Quarter: 2023Q2

REPORT INFORMATION
  Report Type: Spontaneous
  Country: FR (occurrence: FR)
  Receive Date: 20230513
  Receipt Date: 20230513
  Transmission Date: 20230722
  Serious: Yes (Life-Threatening, Hospitalization, Other)
  Sender: FDA-Public Use
  Company Number: FR-AFSSAPS-PC2023000469

PATIENT
  Age: 17 Year
  Sex: Female
  Weight: 60 kg

DRUGS (2)
  1. TRAMADOL [Suspect]
     Active Substance: TRAMADOL
     Indication: Axillary pain
     Dosage: 20 MILLIGRAM
     Route: 042
     Dates: start: 20230416, end: 20230416
  2. MORPHINE [Suspect]
     Active Substance: MORPHINE
     Indication: Axillary pain
     Dosage: 7 MILLIGRAM
     Route: 042
     Dates: start: 20230416, end: 20230416

REACTIONS (2)
  - Coma scale abnormal [Recovered/Resolved]
  - Epilepsy [Recovered/Resolved]

NARRATIVE: CASE EVENT DATE: 20230416
